FAERS Safety Report 6540120-9 (Version None)
Quarter: 2010Q1

REPORT INFORMATION
  Report Type: 
  Country: None (occurrence: None)
  Receive Date: 20100115
  Receipt Date: 20100104
  Transmission Date: 20100710
  Serious: Yes (Other)
  Sender: FDA-Public Use
  Company Number: GB-WATSON-2010-00111

PATIENT
  Age: 76 Year
  Sex: Male

DRUGS (8)
  1. SERTRALINE HYDROCHLORIDE [Suspect]
     Indication: DEPRESSED MOOD
     Dosage: 50 MG, UNK
     Route: 048
  2. MIRAPEX [Suspect]
     Indication: PARKINSON'S DISEASE
     Dosage: UNK
     Route: 048
  3. CIMETIDINE [Concomitant]
     Indication: DRUG USE FOR UNKNOWN INDICATION
     Dosage: UNK
  4. FUROSEMIDE [Concomitant]
     Indication: DRUG USE FOR UNKNOWN INDICATION
     Dosage: 80 MG, DAILY
     Route: 048
  5. MADOPAR                            /00349201/ [Concomitant]
     Indication: PARKINSON'S DISEASE
     Dosage: 375 MG, DAILY
     Route: 048
  6. QUININE [Concomitant]
     Indication: DRUG USE FOR UNKNOWN INDICATION
     Dosage: UNK
     Route: 048
  7. SPIRONOLACTONE [Concomitant]
     Indication: CARDIAC FAILURE CONGESTIVE
     Dosage: 25 MG, DAILY
  8. INFUMORPH [Concomitant]
     Indication: PAIN
     Dosage: 10 MG, DAILY
     Route: 048

REACTIONS (2)
  - VISUAL IMPAIRMENT [None]
  - VITREOUS FLOATERS [None]
